FAERS Safety Report 23438684 (Version 1)
Quarter: 2024Q1

REPORT INFORMATION
  Report Type: Spontaneous
  Country: US (occurrence: US)
  Receive Date: 20240124
  Receipt Date: 20240124
  Transmission Date: 20240410
  Serious: Yes (Hospitalization)
  Sender: FDA-Public Use
  Company Number: US-TEVA-VS-3147276

PATIENT
  Age: 65 Year

DRUGS (1)
  1. AMIODARONE [Suspect]
     Active Substance: AMIODARONE
     Indication: Atrial fibrillation
     Route: 065

REACTIONS (3)
  - Hyperthyroidism [Recovering/Resolving]
  - Cardiac failure [Recovering/Resolving]
  - Cardiopulmonary failure [Recovering/Resolving]
